FAERS Safety Report 21920278 (Version 2)
Quarter: 2024Q1

REPORT INFORMATION
  Report Type: Spontaneous
  Country: US (occurrence: US)
  Receive Date: 20230127
  Receipt Date: 20240103
  Transmission Date: 20240410
  Serious: Yes (Other)
  Sender: FDA-Public Use
  Company Number: US-AMNEAL PHARMACEUTICALS-2023-AMRX-00251

PATIENT
  Sex: Female

DRUGS (4)
  1. RYTARY [Suspect]
     Active Substance: CARBIDOPA\LEVODOPA
     Indication: Product used for unknown indication
     Dosage: 2 CAPSULES 3 TIMES DAILY, AT 10AM, 2PM AND 6PM
     Route: 048
     Dates: start: 20220223
  2. RYTARY [Suspect]
     Active Substance: CARBIDOPA\LEVODOPA
     Dosage: 7 CAPSULES, QD
     Route: 048
     Dates: start: 20230220
  3. RYTARY [Suspect]
     Active Substance: CARBIDOPA\LEVODOPA
     Dosage: 36.25-145 MG, 2 CAPSULES 3 TIMES A DAY, AT 10AM, 2PM AND 6PM AND TAKE 02 CAPSULES BY MOUTH EVERY NIG
     Route: 048
     Dates: start: 20230926
  4. AMANTADINE [Concomitant]
     Active Substance: AMANTADINE
     Indication: Product used for unknown indication
     Dosage: UNK
     Route: 065

REACTIONS (4)
  - Spinal cord injury [Unknown]
  - Fall [Unknown]
  - Tremor [Unknown]
  - Dyspnoea [Unknown]
